FAERS Safety Report 8509648-6 (Version None)
Quarter: 2012Q3

REPORT INFORMATION
  Report Type: 
  Country: None (occurrence: None)
  Receive Date: 20120713
  Receipt Date: 20120706
  Transmission Date: 20120928
  Serious: Yes (Hospitalization, Other)
  Sender: FDA-Public Use
  Company Number: US-ABBOTT-12P-163-0941136-00

PATIENT
  Sex: Female

DRUGS (2)
  1. CREON [Suspect]
     Indication: PANCREATITIS CHRONIC
     Dosage: DAILY WITH MEALS, 24K UNITS
     Dates: start: 20100101, end: 20110601
  2. CREON [Suspect]
     Dosage: DAILY WITH MEALS, 24K UNITS

REACTIONS (6)
  - LIP SWELLING [None]
  - DYSPNOEA [None]
  - HYPERTENSION [None]
  - OEDEMA MOUTH [None]
  - COLON CANCER [None]
  - HEART RATE INCREASED [None]
